FAERS Safety Report 19987593 (Version 1)
Quarter: 2021Q4

REPORT INFORMATION
  Report Type: Spontaneous
  Country: US (occurrence: US)
  Receive Date: 20211022
  Receipt Date: 20211022
  Transmission Date: 20220303
  Serious: Yes (Other)
  Sender: FDA-Public Use
  Company Number: US-GLAXOSMITHKLINE-USCH2021AMR073874

PATIENT
  Age: 40 Year
  Sex: Female
  Weight: 69.39 kg

DRUGS (8)
  1. ADVIL [Suspect]
     Active Substance: IBUPROFEN
     Indication: Pain
     Dosage: UNK
     Route: 048
  2. HUMIRA [Suspect]
     Active Substance: ADALIMUMAB
     Indication: Rheumatoid arthritis
     Dosage: 40 MG, 1 IN 2 WEEK
     Route: 058
     Dates: start: 2018, end: 202103
  3. TRAMADOL [Suspect]
     Active Substance: TRAMADOL
     Indication: Pain
     Dosage: UNK
  4. FOLIC ACID [Concomitant]
     Active Substance: FOLIC ACID
     Indication: Product used for unknown indication
     Dosage: UNK
  5. METHOTREXATE [Concomitant]
     Active Substance: METHOTREXATE
     Indication: Rheumatoid arthritis
     Dosage: UNK
  6. VITAMIN D [Concomitant]
     Active Substance: VITAMIN D NOS
     Indication: Vitamin D deficiency
     Dosage: UNK
  7. VITAMIN B [Concomitant]
     Active Substance: VITAMIN B
     Indication: Supplementation therapy
     Dosage: UNK
  8. TYLENOL [Concomitant]
     Active Substance: ACETAMINOPHEN
     Indication: Pain
     Dosage: UNK

REACTIONS (5)
  - Haemorrhoids [Recovering/Resolving]
  - Liver disorder [Unknown]
  - Drug intolerance [Recovered/Resolved]
  - Arthralgia [Unknown]
  - Therapeutic product effect decreased [Not Recovered/Not Resolved]

NARRATIVE: CASE EVENT DATE: 20201001
